FAERS Safety Report 5391416-8 (Version None)
Quarter: 2007Q3

REPORT INFORMATION
  Report Type: 
  Country: None (occurrence: None)
  Receive Date: 20070719
  Receipt Date: 20070710
  Transmission Date: 20080115
  Serious: Yes (Other)
  Sender: FDA-Public Use
  Company Number: GB-ROCHE-505368

PATIENT
  Age: 70 Year
  Sex: Female
  Weight: 55 kg

DRUGS (9)
  1. CELLCEPT [Suspect]
     Indication: DEMYELINATING POLYNEUROPATHY
     Route: 048
     Dates: start: 20070401
  2. CELLCEPT [Suspect]
     Route: 048
  3. CANDESARTAN [Concomitant]
  4. WARFARIN SODIUM [Concomitant]
  5. IMMUNE GLOBULIN INTRAVENOUS (HUMAN) [Concomitant]
     Indication: DEMYELINATING POLYNEUROPATHY
     Dosage: FREQUENCY REPORTED AS MONTHLY
     Route: 042
  6. BISOPROLOL [Concomitant]
  7. SPIRONOLACTONE [Concomitant]
  8. FUROSEMIDE INTENSOL [Concomitant]
  9. ISOSORBIDE MONONITRATE [Concomitant]

REACTIONS (1)
  - LIPIDS ABNORMAL [None]
